FAERS Safety Report 25412028 (Version 2)
Quarter: 2025Q2

REPORT INFORMATION
  Report Type: Report from Study
  Country: US (occurrence: US)
  Receive Date: 20250609
  Receipt Date: 20250616
  Transmission Date: 20250716
  Serious: Yes (Hospitalization, Other)
  Sender: AIMMUNE
  Company Number: US-NESTLEHEALTHSCIENCE-2021000118

PATIENT

DRUGS (2)
  1. ZENPEP [Suspect]
     Active Substance: PANCRELIPASE AMYLASE\PANCRELIPASE LIPASE\PANCRELIPASE PROTEASE
     Indication: Pancreatic failure
     Route: 048
     Dates: start: 2020
  2. ZENPEP [Suspect]
     Active Substance: PANCRELIPASE AMYLASE\PANCRELIPASE LIPASE\PANCRELIPASE PROTEASE
     Route: 048

REACTIONS (9)
  - Hospitalisation [Unknown]
  - Atrial fibrillation [Unknown]
  - Precancerous lesion of digestive tract [Unknown]
  - Lung neoplasm malignant [Unknown]
  - Decreased appetite [Unknown]
  - Dizziness [Unknown]
  - Neck surgery [Unknown]
  - Muscle spasms [Unknown]
  - Abdominal pain [Unknown]

NARRATIVE: CASE EVENT DATE: 20210101
